FAERS Safety Report 11972252 (Version 1)
Quarter: 2016Q1

REPORT INFORMATION
  Report Type: Other
  Country: DE (occurrence: DE)
  Receive Date: 20160128
  Receipt Date: 20160128
  Transmission Date: 20160526
  Serious: Yes (Other)
  Sender: FDA-Public Use
  Company Number: DE-MYLANLABS-2016M1002782

PATIENT

DRUGS (1)
  1. SPIRONOLACTONE. [Suspect]
     Active Substance: SPIRONOLACTONE
     Indication: HYPERTENSION
     Dosage: UNK

REACTIONS (7)
  - Hyperaesthesia [Unknown]
  - Breast discomfort [Unknown]
  - Hypotension [Unknown]
  - Breast enlargement [Unknown]
  - Exfoliative rash [Unknown]
  - Muscle spasms [Unknown]
  - Pruritus [Unknown]
